FAERS Safety Report 14378808 (Version 3)
Quarter: 2024Q4

REPORT INFORMATION
  Report Type: Spontaneous
  Country: US (occurrence: US)
  Receive Date: 20180112
  Receipt Date: 20241226
  Transmission Date: 20250114
  Serious: Yes (Other)
  Sender: MERCK
  Company Number: US-009507513-1801USA000892

PATIENT

DRUGS (1)
  1. TEMODAR [Suspect]
     Active Substance: TEMOZOLOMIDE
     Route: 048

REACTIONS (1)
  - Tumour pseudoprogression [Unknown]
